FAERS Safety Report 7931643-6 (Version None)
Quarter: 2011Q4

REPORT INFORMATION
  Report Type: 
  Country: None (occurrence: None)
  Receive Date: 20111121
  Receipt Date: 20111110
  Transmission Date: 20120403
  Serious: Yes (Hospitalization)
  Sender: FDA-Public Use
  Company Number: PHHY2010US26135

PATIENT
  Sex: Male

DRUGS (8)
  1. UROXATRAL [Concomitant]
     Dosage: 10 MG, UNK
     Route: 048
  2. GLEEVEC [Suspect]
     Dosage: 400 MG, UNK
     Route: 048
     Dates: start: 20110525
  3. FEXOFENADINE [Concomitant]
     Dosage: 180 MG, UNK
     Route: 048
  4. GLEEVEC [Suspect]
     Dosage: 400 MG, UNK
     Route: 048
     Dates: start: 20090910
  5. ATENOLOL [Concomitant]
     Dosage: 25 MG, QHS
     Route: 048
  6. WARFARIN SODIUM [Concomitant]
     Dosage: 5 MG, UNK
     Route: 048
  7. NOVOLOG [Concomitant]
     Route: 058
  8. GLEEVEC [Suspect]
     Indication: CHRONIC MYELOID LEUKAEMIA
     Dosage: 400 MG, QD
     Route: 048
     Dates: start: 20090901

REACTIONS (17)
  - VEIN DISORDER [None]
  - MALAISE [None]
  - DIABETES MELLITUS INADEQUATE CONTROL [None]
  - ASTHMA [None]
  - DECREASED APPETITE [None]
  - OEDEMA PERIPHERAL [None]
  - PYREXIA [None]
  - THROMBOSIS [None]
  - RHINITIS ALLERGIC [None]
  - WHEEZING [None]
  - SINUS CONGESTION [None]
  - INFECTION [None]
  - BACK PAIN [None]
  - DYSPNOEA [None]
  - NASAL CONGESTION [None]
  - WEIGHT DECREASED [None]
  - CHILLS [None]
